FAERS Safety Report 5333287-1 (Version None)
Quarter: 2007Q2

REPORT INFORMATION
  Report Type: 
  Country: None (occurrence: None)
  Receive Date: 20070524
  Receipt Date: 20070515
  Transmission Date: 20071010
  Serious: Yes (Other)
  Sender: FDA-Public Use
  Company Number: US-JNJFOC-20070503914

PATIENT
  Sex: Female
  Weight: 81.65 kg

DRUGS (3)
  1. REMICADE [Suspect]
     Indication: COLITIS ULCERATIVE
     Route: 042
  2. FLAGYL [Concomitant]
  3. ENTOCORT [Concomitant]

REACTIONS (9)
  - ANTIPHOSPHOLIPID ANTIBODIES POSITIVE [None]
  - ARTHRALGIA [None]
  - EAR PAIN [None]
  - ERYTHEMA [None]
  - GASTROOESOPHAGEAL REFLUX DISEASE [None]
  - MUSCULOSKELETAL STIFFNESS [None]
  - OEDEMA PERIPHERAL [None]
  - PAIN IN JAW [None]
  - PHARYNGEAL OEDEMA [None]
